FAERS Safety Report 16823853 (Version 1)
Quarter: 2019Q3

REPORT INFORMATION
  Report Type: Spontaneous
  Country: US (occurrence: US)
  Receive Date: 20190918
  Receipt Date: 20190918
  Transmission Date: 20191005
  Serious: No
  Sender: FDA-Public Use
  Company Number: US-LEXICON PHARMACEUTICALS, INC-19-1606-00870

PATIENT
  Sex: Female

DRUGS (3)
  1. SOMATULINE DEPOT [Concomitant]
     Active Substance: LANREOTIDE ACETATE
  2. METOPROLOL. [Concomitant]
     Active Substance: METOPROLOL
  3. TELOTRISTAT ETHYL [Suspect]
     Active Substance: TELOTRISTAT ETHYL
     Indication: METASTASES TO LUNG
     Route: 048
     Dates: start: 20190801

REACTIONS (2)
  - Constipation [Unknown]
  - Decreased appetite [Unknown]
